FAERS Safety Report 18073619 (Version 1)
Quarter: 2020Q3

REPORT INFORMATION
  Report Type: Spontaneous
  Country: CA (occurrence: CA)
  Receive Date: 20200727
  Receipt Date: 20200727
  Transmission Date: 20201103
  Serious: Yes (Hospitalization, Other)
  Sender: FDA-Public Use
  Company Number: CA-APOTEX-2020AP014247

PATIENT
  Age: 27 Month
  Sex: Male
  Weight: 16 kg

DRUGS (6)
  1. FELBAMATE. [Concomitant]
     Active Substance: FELBAMATE
     Indication: EPILEPSY
     Dosage: 300 MILLIGRAM, BID (SINCE HE WAS 24 MONTHS OLD)
     Route: 065
  2. VALPROIC ACID. [Suspect]
     Active Substance: VALPROIC ACID
     Indication: EPILEPSY
     Dosage: 250 MILLIGRAM, BID (SINCE HE WAS 14 MONTHS OF AGE)
     Route: 065
  3. LEVETIRACETAM. [Concomitant]
     Active Substance: LEVETIRACETAM
     Indication: EPILEPSY
     Dosage: 250 MILLIGRAM, BID (SINCE HE WAS 15 MONTHS OLD)
     Route: 065
  4. CLOBAZAM. [Concomitant]
     Active Substance: CLOBAZAM
     Indication: EPILEPSY
     Dosage: 12.5 MILLIGRAM, BID (SINCE HE WAS 12 MONTHS OLD)
     Route: 048
  5. VALPROIC ACID. [Suspect]
     Active Substance: VALPROIC ACID
     Dosage: 300 MILLIGRAM, BID (APPROXIMATELY 38 MG/KG/DAY)
     Route: 065
  6. HYDROCORTISONE. [Concomitant]
     Active Substance: HYDROCORTISONE
     Indication: ADRENAL INSUFFICIENCY
     Dosage: UNK AT LOW DOSE
     Route: 065

REACTIONS (6)
  - Somnolence [Recovered/Resolved]
  - Pancreatitis [Recovered/Resolved]
  - Depressed level of consciousness [Recovered/Resolved]
  - Thrombocytopenia [Recovered/Resolved]
  - Toxicity to various agents [Recovered/Resolved]
  - Drug level above therapeutic [Recovered/Resolved]
